FAERS Safety Report 6516454-0 (Version None)
Quarter: 2009Q4

REPORT INFORMATION
  Report Type: 
  Country: None (occurrence: None)
  Receive Date: 20091223
  Receipt Date: 20091222
  Transmission Date: 20100525
  Serious: Yes (Other)
  Sender: FDA-Public Use
  Company Number: US-WYE-H12751809

PATIENT
  Age: 69 Year
  Sex: Female

DRUGS (2)
  1. TORISEL [Suspect]
     Indication: ENDOMETRIAL CANCER RECURRENT
     Dosage: 25 MG ON DAYS 1, 8, 15, 22
     Route: 042
     Dates: start: 20081203, end: 20090901
  2. BEVACIZUMAB [Suspect]
     Indication: ENDOMETRIAL CANCER RECURRENT
     Dosage: 10 MG/KG ON DAYS 1 AND 15
     Route: 042
     Dates: start: 20081203, end: 20090901

REACTIONS (2)
  - COGNITIVE DISORDER [None]
  - FATIGUE [None]
